FAERS Safety Report 4543407-4 (Version None)
Quarter: 2005Q1

REPORT INFORMATION
  Report Type: 
  Country: None (occurrence: None)
  Receive Date: 20050103
  Receipt Date: 20030605
  Transmission Date: 20050727
  Serious: Yes (Hospitalization, Disabling)
  Sender: FDA-Public Use
  Company Number: US-MERCK-0306USA00893

PATIENT
  Age: 55 Year
  Sex: Female
  Weight: 110 kg

DRUGS (4)
  1. VIOXX [Suspect]
     Route: 048
     Dates: start: 19991101, end: 20000309
  2. VIOXX [Suspect]
     Route: 048
     Dates: start: 20000501, end: 20010827
  3. VIOXX [Suspect]
     Route: 048
     Dates: start: 20000310
  4. TRAZODONE HYDROCHLORIDE [Concomitant]
     Route: 065

REACTIONS (37)
  - ABDOMINAL PAIN [None]
  - ACUTE MYOCARDIAL INFARCTION [None]
  - ACUTE SINUSITIS [None]
  - ADVERSE EVENT [None]
  - ARTHRALGIA [None]
  - ASTHENIA [None]
  - BLOOD CREATINE PHOSPHOKINASE INCREASED [None]
  - BLOOD POTASSIUM DECREASED [None]
  - CHEST PAIN [None]
  - CONDITION AGGRAVATED [None]
  - COSTOCHONDRITIS [None]
  - COUGH [None]
  - CYSTITIS [None]
  - DIZZINESS [None]
  - DYSPHAGIA [None]
  - FATIGUE [None]
  - FLANK PAIN [None]
  - GASTRITIS [None]
  - GASTROOESOPHAGEAL REFLUX DISEASE [None]
  - HAEMATOCRIT DECREASED [None]
  - HAEMOGLOBIN DECREASED [None]
  - HEADACHE [None]
  - HELICOBACTER INFECTION [None]
  - INJURY [None]
  - LOWER RESPIRATORY TRACT INFECTION [None]
  - MUSCLE SPASMS [None]
  - MYALGIA [None]
  - NON-CARDIAC CHEST PAIN [None]
  - PAIN IN EXTREMITY [None]
  - PELVIC PAIN [None]
  - PULMONARY CONGESTION [None]
  - RESPIRATORY TRACT CONGESTION [None]
  - SINUS HEADACHE [None]
  - SWELLING [None]
  - ULTRASOUND KIDNEY ABNORMAL [None]
  - URINARY TRACT INFECTION [None]
  - VAGINAL MYCOSIS [None]
